FAERS Safety Report 9643929 (Version 1)
Quarter: 2013Q4

REPORT INFORMATION
  Report Type: Spontaneous
  Country: CH (occurrence: CH)
  Receive Date: 20131024
  Receipt Date: 20131024
  Transmission Date: 20140711
  Serious: Yes (Other)
  Sender: FDA-Public Use
  Company Number: PHHY2013CH117829

PATIENT
  Age: 14 Year
  Sex: Female

DRUGS (1)
  1. AMIODARONE [Suspect]
     Indication: ATRIAL FIBRILLATION

REACTIONS (9)
  - Radiculopathy [Unknown]
  - Polyneuropathy [Unknown]
  - Hypoaesthesia [Unknown]
  - Paraesthesia [Unknown]
  - Pain in extremity [Unknown]
  - Areflexia [Unknown]
  - Sensory loss [Unknown]
  - Muscular weakness [Unknown]
  - Rhabdomyolysis [Unknown]
